FAERS Safety Report 8027282-1 (Version None)
Quarter: 2012Q1

REPORT INFORMATION
  Report Type: 
  Country: None (occurrence: None)
  Receive Date: 20120105
  Receipt Date: 20120105
  Transmission Date: 20120608
  Serious: Yes (Hospitalization, Other)
  Sender: FDA-Public Use
  Company Number: None

PATIENT
  Age: 75 Year
  Sex: Female

DRUGS (9)
  1. IMIPRAMINE [Concomitant]
  2. PREMARIN [Concomitant]
  3. ACYCLOVIR [Concomitant]
  4. ALENDRONATE SODIUM [Concomitant]
  5. OMEPRAZOLE [Concomitant]
  6. REVLIMID [Suspect]
     Indication: MULTIPLE MYELOMA
     Dosage: 15 MG EVERY OTHER DAY ORALLY 2-3 DAYS
     Route: 048
  7. HYDROCODONE BITARTRATE AND ACETAMINOPHEN [Concomitant]
  8. ASPIRIN [Concomitant]
  9. MEDROXYPROGESTERONE [Concomitant]

REACTIONS (7)
  - CARDIAC FAILURE CONGESTIVE [None]
  - CORONARY ARTERY DISEASE [None]
  - CARDIOMYOPATHY [None]
  - DEHYDRATION [None]
  - ACUTE MYOCARDIAL INFARCTION [None]
  - ASTHENIA [None]
  - HYPOTENSION [None]
